FAERS Safety Report 7592099-9 (Version None)
Quarter: 2011Q3

REPORT INFORMATION
  Report Type: 
  Country: None (occurrence: None)
  Receive Date: 20110706
  Receipt Date: 20110627
  Transmission Date: 20111222
  Serious: Yes (Hospitalization, Other)
  Sender: FDA-Public Use
  Company Number: US-US-EMD SERONO, INC.-7051442

PATIENT
  Sex: Female

DRUGS (5)
  1. FENTANYL-100 [Concomitant]
     Indication: PAIN
  2. NEURONTIN [Concomitant]
     Indication: PAIN
  3. TIZANIDINE HCL [Concomitant]
     Indication: MUSCLE SPASMS
  4. NORCO [Concomitant]
     Indication: PAIN
  5. REBIF [Suspect]
     Indication: MULTIPLE SCLEROSIS
     Route: 058
     Dates: start: 20110222, end: 20110407

REACTIONS (13)
  - OVARIAN CYST [None]
  - OESOPHAGEAL STENOSIS [None]
  - FEELING ABNORMAL [None]
  - CHOLECYSTITIS [None]
  - VAGINAL HAEMORRHAGE [None]
  - INFLUENZA LIKE ILLNESS [None]
  - HYPERHIDROSIS [None]
  - HEPATIC CYST [None]
  - FEELING HOT [None]
  - HEADACHE [None]
  - GALLBLADDER PERFORATION [None]
  - HEPATIC LESION [None]
  - DIZZINESS [None]
